FAERS Safety Report 9314019 (Version 1)
Quarter: 2013Q2

REPORT INFORMATION
  Report Type: Spontaneous
  Country: US (occurrence: None)
  Receive Date: 20130524
  Receipt Date: 20130524
  Transmission Date: 20140414
  Serious: No
  Sender: FDA-Public Use
  Company Number: None

PATIENT
  Age: 63 Year
  Sex: Female
  Weight: 76.2 kg

DRUGS (1)
  1. TUDORZA PRESSAIR [Suspect]
     Indication: CHRONIC OBSTRUCTIVE PULMONARY DISEASE
     Dosage: 60 ONCE A DAY OTHER ?A LITTLE OVER A MONTH
     Dates: start: 20130312, end: 20130417

REACTIONS (4)
  - Swollen tongue [None]
  - Lip swelling [None]
  - Oedema mouth [None]
  - Fear [None]
